FAERS Safety Report 24025026 (Version 1)
Quarter: 2024Q2

REPORT INFORMATION
  Report Type: Spontaneous
  Country: CN (occurrence: CN)
  Receive Date: 20240628
  Receipt Date: 20240628
  Transmission Date: 20240716
  Serious: No
  Sender: FDA-Public Use
  Company Number: CN-ROCHE-3423283

PATIENT
  Age: 38 Year
  Sex: Female

DRUGS (8)
  1. ALECTINIB [Suspect]
     Active Substance: ALECTINIB
     Indication: Non-small cell lung cancer
     Route: 048
     Dates: start: 20210930
  2. PACLITAXEL [Concomitant]
     Active Substance: PACLITAXEL
  3. PACLITAXEL [Concomitant]
     Active Substance: PACLITAXEL
     Dates: start: 20221105
  4. NEDAPLATIN [Concomitant]
     Active Substance: NEDAPLATIN
     Dates: start: 20210928
  5. LORLATINIB [Concomitant]
     Active Substance: LORLATINIB
     Dates: start: 20220825
  6. CARBOPLATIN [Concomitant]
     Active Substance: CARBOPLATIN
     Dates: start: 20221105
  7. CAMRELIZUMAB [Concomitant]
     Active Substance: CAMRELIZUMAB
     Dates: start: 20221105
  8. ENDOSTATIN [Concomitant]
     Active Substance: ENDOSTATIN
     Dates: start: 20221105

REACTIONS (3)
  - Drug resistance [Unknown]
  - Disease progression [Unknown]
  - Drug ineffective [Unknown]

NARRATIVE: CASE EVENT DATE: 20220809
